FAERS Safety Report 8397764 (Version 4)
Quarter: 2015Q2

REPORT INFORMATION
  Report Type: Report from Study
  Country: PT (occurrence: PT)
  Receive Date: 20120209
  Receipt Date: 20150618
  Transmission Date: 20150821
  Serious: Yes (Death, Hospitalization, Other)
  Sender: FDA-Public Use
  Company Number: PT-ACTELION PHARMACEUTICALS LTD-A-CH2012-60760

PATIENT
  Age: 26 Year
  Sex: Female
  Weight: 55 kg

DRUGS (4)
  1. AAS [Concomitant]
     Active Substance: ASPIRIN
  2. TRACLEER [Suspect]
     Active Substance: BOSENTAN\BOSENTAN MONOHYDRATE
     Indication: SKIN ULCER
     Dosage: 125 MG, BID
     Route: 048
     Dates: start: 20091102
  3. NIFEDIPINE. [Concomitant]
     Active Substance: NIFEDIPINE
  4. PREDNISOLONE. [Concomitant]
     Active Substance: PREDNISOLONE

REACTIONS (13)
  - Myocardial fibrosis [Unknown]
  - Device related infection [Unknown]
  - Cough [Unknown]
  - Condition aggravated [Recovered/Resolved]
  - Inflammation [Recovered/Resolved]
  - Sinus arrhythmia [Fatal]
  - Infected skin ulcer [Recovered/Resolved]
  - Pulmonary fibrosis [Not Recovered/Not Resolved]
  - Raynaud^s phenomenon [Recovered/Resolved]
  - Endocarditis [Unknown]
  - Skin ulcer [Recovered/Resolved]
  - Cardiac arrest [Fatal]
  - Right ventricular failure [Not Recovered/Not Resolved]

NARRATIVE: CASE EVENT DATE: 20110322
